FAERS Safety Report 9925911 (Version 1)
Quarter: 2014Q1

REPORT INFORMATION
  Report Type: Spontaneous
  Country: CN (occurrence: CN)
  Receive Date: 20140226
  Receipt Date: 20140226
  Transmission Date: 20141002
  Serious: Yes (Other)
  Sender: FDA-Public Use
  Company Number: CN-B.I. PHARMACEUTICALS,INC./RIDGEFIELD-2014-BI-08427YA

PATIENT
  Age: 61 Year
  Sex: Male
  Weight: 58 kg

DRUGS (3)
  1. HARNAL [Suspect]
     Indication: NOCTURIA
     Dosage: 0.2 MG
     Route: 048
     Dates: start: 20140217, end: 20140218
  2. HARNAL [Suspect]
     Indication: MICTURITION URGENCY
  3. HARNAL [Suspect]
     Indication: BENIGN PROSTATIC HYPERPLASIA

REACTIONS (1)
  - Dizziness [Unknown]
